FAERS Safety Report 24998404 (Version 1)
Quarter: 2025Q1

REPORT INFORMATION
  Report Type: Spontaneous
  Country: US (occurrence: US)
  Receive Date: 20250222
  Receipt Date: 20250222
  Transmission Date: 20250408
  Serious: No
  Sender: SANOFI AVENTIS
  Company Number: US-SA-2025SA047217

PATIENT
  Age: 29 Year
  Sex: Male

DRUGS (2)
  1. ELOCTATE [Suspect]
     Active Substance: EFMOROCTOCOG ALFA
     Dosage: 6250 UNITS (+/-10%), BIW
     Route: 042
  2. ELOCTATE [Suspect]
     Active Substance: EFMOROCTOCOG ALFA
     Dosage: 6250 UNITS (+/-10%), BIW
     Route: 042

REACTIONS (2)
  - Muscle strain [Unknown]
  - Myalgia [Unknown]

NARRATIVE: CASE EVENT DATE: 20250127
